FAERS Safety Report 21562643 (Version 1)
Quarter: 2022Q4

REPORT INFORMATION
  Report Type: Spontaneous
  Country: None (occurrence: FR)
  Receive Date: 20221107
  Receipt Date: 20221107
  Transmission Date: 20230113
  Serious: Yes (Hospitalization)
  Sender: FDA-Public Use
  Company Number: FR-Canton Laboratories, LLC-2134610

PATIENT
  Age: 64 Year
  Sex: Female

DRUGS (6)
  1. NAPROSYN [Suspect]
     Active Substance: NAPROXEN
     Indication: Bipolar disorder
     Route: 048
     Dates: start: 20220912, end: 20220915
  2. TERALITHE [Suspect]
     Active Substance: LITHIUM CARBONATE
     Route: 048
     Dates: end: 20220915
  3. TROPATEPINE HYDROCHLORIDE [Concomitant]
     Active Substance: TROPATEPINE HYDROCHLORIDE
  4. ABILIFY [Concomitant]
     Active Substance: ARIPIPRAZOLE
  5. PREGABALIN [Concomitant]
     Active Substance: PREGABALIN
  6. TRAMADOL HYDROCHLORIDE [Concomitant]
     Active Substance: TRAMADOL HYDROCHLORIDE

REACTIONS (1)
  - Ataxia [Not Recovered/Not Resolved]

NARRATIVE: CASE EVENT DATE: 20220915
